FAERS Safety Report 17509976 (Version 1)
Quarter: 2020Q1

REPORT INFORMATION
  Report Type: Spontaneous
  Country: US (occurrence: US)
  Receive Date: 20200226
  Receipt Date: 20200226
  Transmission Date: 20200409
  Serious: No
  Sender: FDA-Public Use
  Company Number: None

PATIENT
  Sex: Female

DRUGS (4)
  1. VITAMIN D3 [Concomitant]
     Active Substance: CHOLECALCIFEROL
  2. METHOTREXATE. [Concomitant]
     Active Substance: METHOTREXATE
  3. HUMIRA [Suspect]
     Active Substance: ADALIMUMAB
     Indication: RHEUMATOID ARTHRITIS
     Route: 058
     Dates: start: 201911
  4. LEUCOVORIN. [Concomitant]
     Active Substance: LEUCOVORIN

REACTIONS (4)
  - Injection site erythema [None]
  - Injection site dryness [None]
  - Injection site discolouration [None]
  - Injection site pruritus [None]
